FAERS Safety Report 8333816-X (Version None)
Quarter: 2012Q2

REPORT INFORMATION
  Report Type: 
  Country: None (occurrence: None)
  Receive Date: 20120503
  Receipt Date: 20120426
  Transmission Date: 20120825
  Serious: Yes (Hospitalization, Other)
  Sender: FDA-Public Use
  Company Number: US-PFIZER INC-2012054711

PATIENT
  Sex: Female
  Weight: 40.82 kg

DRUGS (16)
  1. PANTOPRAZOLE [Suspect]
     Dosage: 30 MG, UNK
     Dates: start: 20110101, end: 20110101
  2. BYSTOLIC [Concomitant]
     Indication: HYPERTENSION
     Dosage: 10 MG, UNK
  3. FISH OIL [Concomitant]
     Dosage: UNK, DAILY
  4. LIPITOR [Suspect]
     Indication: BLOOD CHOLESTEROL INCREASED
     Dosage: 80 MG, DAILY
  5. FOLIC ACID [Concomitant]
     Dosage: UNK, DAILY
  6. BYSTOLIC [Concomitant]
     Indication: CARDIAC DISORDER
  7. NIASPAN [Concomitant]
     Dosage: UNK
  8. PANTOPRAZOLE [Suspect]
     Indication: GASTROOESOPHAGEAL REFLUX DISEASE
     Dosage: 30 MG,DAILY
     Route: 048
     Dates: start: 20111212, end: 20111201
  9. ASPIRIN [Concomitant]
     Indication: CARDIAC DISORDER
     Dosage: 81 MG, DAILY
  10. VITAMIN B6 [Concomitant]
     Dosage: UNK, DAILY
  11. LASIX [Concomitant]
     Indication: CARDIAC DISORDER
     Dosage: 45 MG, DAILY
  12. PLAVIX [Concomitant]
     Indication: CARDIAC DISORDER
     Dosage: 75 MG, UNK
  13. LOVAZA [Concomitant]
     Dosage: UNK,DAILY
  14. MULTI-VITAMINS [Concomitant]
     Dosage: UNK, DAILY
  15. PROTONIX [Suspect]
     Indication: GASTROOESOPHAGEAL REFLUX DISEASE
     Dosage: 40 MG,DAILY
     Dates: start: 20111223
  16. HYZAAR [Suspect]
     Indication: BLOOD PRESSURE ABNORMAL
     Dosage: UNK

REACTIONS (9)
  - BLOOD GLUCOSE INCREASED [None]
  - INCREASED UPPER AIRWAY SECRETION [None]
  - DECREASED APPETITE [None]
  - WEIGHT DECREASED [None]
  - GASTROOESOPHAGEAL REFLUX DISEASE [None]
  - DRUG INEFFECTIVE [None]
  - EATING DISORDER [None]
  - MALAISE [None]
  - COUGH [None]
